FAERS Safety Report 7500760-7 (Version None)
Quarter: 2011Q2

REPORT INFORMATION
  Report Type: 
  Country: None (occurrence: None)
  Receive Date: 20110524
  Receipt Date: 20110519
  Transmission Date: 20111010
  Serious: Yes (Hospitalization, Disabling)
  Sender: FDA-Public Use
  Company Number: JP-B.I. PHARMACEUTICALS,INC./RIDGEFIELD-2011-BP-09460NB

PATIENT
  Sex: Male
  Weight: 50 kg

DRUGS (12)
  1. ATELEC [Concomitant]
     Indication: HYPERTENSION
     Dosage: 20 MG
     Route: 048
     Dates: start: 20050101
  2. RENAGEL [Concomitant]
     Indication: NEPHRITIS
     Dosage: 2 G
     Route: 048
     Dates: start: 20060101
  3. ARGAMATE [Concomitant]
     Indication: NEPHRITIS
     Dosage: 25 G
     Route: 048
  4. SIGMART [Concomitant]
     Indication: CARDIAC FAILURE CHRONIC
     Dosage: 10 MG
     Route: 048
     Dates: start: 20040101
  5. CALTAN [Concomitant]
     Indication: NEPHRITIS
     Dosage: 1.5 G
     Route: 048
     Dates: start: 20060101
  6. PREDNISOLONE [Concomitant]
     Indication: ANTI-NEUTROPHIL CYTOPLASMIC ANTIBODY POSITIVE VASCULITIS
     Dosage: 5 MG
     Route: 048
     Dates: start: 19990101
  7. FRANDOL [Concomitant]
     Indication: CARDIAC FAILURE CHRONIC
     Dosage: 1 DF
     Route: 062
     Dates: start: 20040101
  8. MICARDIS [Suspect]
     Indication: NEPHRITIS
     Dosage: 40 MG
     Route: 048
     Dates: start: 20091013, end: 20110326
  9. SOLDOL [Concomitant]
     Dosage: 12 MG
     Route: 048
  10. THYRADIN [Concomitant]
     Indication: HYPERTHYROIDISM
     Dosage: 150 MCG
     Route: 048
     Dates: start: 19990101
  11. AMOBAN [Concomitant]
     Dosage: 7.5 MG
     Route: 048
  12. ALFAROL [Concomitant]
     Indication: NEPHRITIS
     Dosage: 0.5 MCG
     Route: 048
     Dates: start: 20060101

REACTIONS (2)
  - HYPOGLYCAEMIA [None]
  - POST GASTRIC SURGERY SYNDROME [None]
